FAERS Safety Report 4665072-8 (Version None)
Quarter: 2005Q2

REPORT INFORMATION
  Report Type: 
  Country: None (occurrence: None)
  Receive Date: 20050517
  Receipt Date: 20050428
  Transmission Date: 20051028
  Serious: Yes (Hospitalization)
  Sender: FDA-Public Use
  Company Number: FR_050506356

PATIENT
  Age: 73 Year
  Sex: Female

DRUGS (11)
  1. ZYPREXA [Suspect]
     Indication: BIPOLAR I DISORDER
     Dosage: 1 DSG FORM/1 DAY
  2. AUGMENTIN '125' [Concomitant]
  3. TRANXENE [Concomitant]
  4. ANAFRANIL [Concomitant]
  5. OFLOXACIN [Concomitant]
  6. PRAVASTATIN [Concomitant]
  7. VASTRAREL (TRIMETAZINDINE HYDROCHLORIDE) [Concomitant]
  8. NITROGLYCERIN [Concomitant]
  9. OXAZEPAM [Concomitant]
  10. TERCIAN (CYAMEMAZINE) [Concomitant]
  11. KARDEGIC (ACETYLSALICYLATE LYSINE) [Concomitant]

REACTIONS (8)
  - ALANINE AMINOTRANSFERASE INCREASED [None]
  - ASPARTATE AMINOTRANSFERASE INCREASED [None]
  - BLOOD ALKALINE PHOSPHATASE INCREASED [None]
  - BLOOD BILIRUBIN INCREASED [None]
  - BLOOD BILIRUBIN UNCONJUGATED INCREASED [None]
  - CHOLESTASIS [None]
  - GAMMA-GLUTAMYLTRANSFERASE INCREASED [None]
  - LIPASE INCREASED [None]
